FAERS Safety Report 4504693-X (Version None)
Quarter: 2004Q4

REPORT INFORMATION
  Report Type: 
  Country: None (occurrence: None)
  Receive Date: 20041118
  Receipt Date: 20040224
  Transmission Date: 20050328
  Serious: Yes (Hospitalization)
  Sender: FDA-Public Use
  Company Number: GB-MERCK-0402GBR00229

PATIENT
  Sex: Female
  Weight: 2 kg

DRUGS (2)
  1. ZOCOR [Suspect]
     Indication: TYPE IIA HYPERLIPIDAEMIA
     Dates: start: 19960101, end: 20040220
  2. HORMONAL CONTRACEPTIVES (UNSPECIFIED) [Concomitant]
     Dates: end: 20040201

REACTIONS (4)
  - BLOOD GLUCOSE FLUCTUATION [None]
  - DRUG EXPOSURE DURING PREGNANCY [None]
  - JAUNDICE [None]
  - JAUNDICE NEONATAL [None]
